FAERS Safety Report 10172649 (Version 2)
Quarter: 2014Q2

REPORT INFORMATION
  Report Type: Report from Study
  Country: DE (occurrence: DE)
  Receive Date: 20140515
  Receipt Date: 20140624
  Transmission Date: 20141212
  Serious: Yes (Death, Other)
  Sender: FDA-Public Use
  Company Number: DE-BEH-2014042466

PATIENT
  Age: 44 Year
  Sex: Male
  Weight: 91 kg

DRUGS (6)
  1. PRIVIGEN [Suspect]
     Indication: STEM CELL TRANSPLANT
     Dosage: INFUSION RATE MIN. 0.455 ML/MIN; MAX. 3.03 ML/MIN
     Dates: start: 20130425, end: 20130425
  2. PRIVIGEN [Suspect]
     Indication: ALLOGENIC BONE MARROW TRANSPLANTATION THERAPY
     Dosage: INFUSION RATE MIN. 0.455 ML/MIN; MAX. 3.03 ML/MIN
     Dates: start: 20130916, end: 20130916
  3. PRIVIGEN [Suspect]
     Dosage: INFUSION RATE MIN. 0.45 ML/MIN; MAX. 6.06 ML/MIN
     Dates: start: 20130917, end: 20130917
  4. PRIVIGEN [Suspect]
     Dosage: INFUSION RATE MIN. 0.91 ML/MIN; MAX. 7.28 ML/MIN
     Dates: start: 20130918, end: 20130918
  5. PRIVIGEN [Suspect]
     Dosage: INFUSION RATE MIN. 1.25 ML/MIN; MAX. 9 ML/MIN
     Dates: start: 20131211, end: 20131211
  6. PRIVIGEN [Suspect]
     Dosage: INFUSION RATE MIN. 1.21 ML/MIN; MAX. 8.7 ML/MIN
     Dates: start: 20131212, end: 20131212

REACTIONS (3)
  - Pneumonia [Recovered/Resolved]
  - Acute lymphocytic leukaemia recurrent [Fatal]
  - Malignant ascites [Fatal]
